FAERS Safety Report 8926424 (Version 1)
Quarter: 2012Q4

REPORT INFORMATION
  Report Type: 
  Country: DE (occurrence: DE)
  Receive Date: 20121127
  Receipt Date: 20121127
  Transmission Date: 20130627
  Serious: Yes (Other)
  Sender: FDA-Public Use
  Company Number: DE-BAYER-2012-122345

PATIENT
  Sex: Male
  Weight: 88 kg

DRUGS (1)
  1. ULTRAVIST [Suspect]
     Indication: CT SCAN
     Dosage: 120 ml, UNK
     Route: 042

REACTIONS (3)
  - Cardiovascular disorder [None]
  - Nausea [Recovering/Resolving]
  - Muscle tightness [Recovering/Resolving]
